FAERS Safety Report 5968277-9 (Version None)
Quarter: 2008Q4

REPORT INFORMATION
  Report Type: 
  Country: None (occurrence: None)
  Receive Date: 20081126
  Receipt Date: 20081117
  Transmission Date: 20090506
  Serious: Yes (Other)
  Sender: FDA-Public Use
  Company Number: US-JNJFOC-20081104858

PATIENT
  Age: 70 Year
  Sex: Female
  Weight: 87.54 kg

DRUGS (3)
  1. TYLENOL (CAPLET) [Suspect]
     Route: 048
  2. TYLENOL (CAPLET) [Suspect]
     Indication: PAIN IN EXTREMITY
     Route: 048
  3. MAXZIDE [Concomitant]
     Indication: HYPERTENSION

REACTIONS (5)
  - COUGH [None]
  - DYSPHAGIA [None]
  - DYSPNOEA [None]
  - FOREIGN BODY TRAUMA [None]
  - WHEEZING [None]
